APPROVED DRUG PRODUCT: LEVETIRACETAM
Active Ingredient: LEVETIRACETAM
Strength: 1GM
Dosage Form/Route: TABLET;ORAL
Application: A078797 | Product #001
Applicant: WATSON LABORATORIES INC
Approved: Jan 15, 2009 | RLD: No | RS: No | Type: DISCN